FAERS Safety Report 5447690-2 (Version None)
Quarter: 2007Q3

REPORT INFORMATION
  Report Type: 
  Country: None (occurrence: None)
  Receive Date: 20070910
  Receipt Date: 20070904
  Transmission Date: 20080115
  Serious: Yes (Other)
  Sender: FDA-Public Use
  Company Number: GB-MERCK-0709USA00566

PATIENT
  Age: 83 Year
  Sex: Female

DRUGS (4)
  1. PRINIVIL [Suspect]
     Indication: HYPERTENSION
     Route: 048
     Dates: start: 20060901, end: 20070629
  2. ALENDRONAT [Concomitant]
     Indication: OSTEOPOROSIS
     Route: 048
  3. ASPIRIN [Concomitant]
     Indication: ANGIOPATHY
     Route: 048
  4. BENDROFLUMETHIAZIDE [Concomitant]
     Indication: HYPERTENSION
     Route: 048

REACTIONS (3)
  - DIZZINESS [None]
  - PALPITATIONS [None]
  - RAYNAUD'S PHENOMENON [None]
